FAERS Safety Report 25248859 (Version 1)
Quarter: 2025Q2

REPORT INFORMATION
  Report Type: Spontaneous
  Country: GB (occurrence: GB)
  Receive Date: 20250429
  Receipt Date: 20250429
  Transmission Date: 20250716
  Serious: Yes (Other)
  Sender: AUROBINDO
  Company Number: GB-MHRA-MED-202504142157145400-VYWBM

PATIENT
  Sex: Male

DRUGS (1)
  1. QUETIAPINE [Suspect]
     Active Substance: QUETIAPINE
     Indication: Product used for unknown indication
     Route: 065

REACTIONS (5)
  - Sedation [Recovered/Resolved]
  - Vision blurred [Recovered/Resolved]
  - Paranoia [Recovered/Resolved]
  - Hallucination [Recovered/Resolved]
  - Withdrawal syndrome [Recovered/Resolved]
